FAERS Safety Report 8308483-1 (Version None)
Quarter: 2012Q2

REPORT INFORMATION
  Report Type: 
  Country: None (occurrence: None)
  Receive Date: 20120420
  Receipt Date: 20120409
  Transmission Date: 20120825
  Serious: Yes (Death, Life-Threatening, Hospitalization, Other)
  Sender: FDA-Public Use
  Company Number: 2012MA004734

PATIENT
  Age: 29 Year
  Sex: Female

DRUGS (2)
  1. FEVERALL [Suspect]
     Indication: PYREXIA
  2. FEVERALL [Suspect]
     Indication: COUGH

REACTIONS (17)
  - CARDIAC DISORDER [None]
  - ASPARTATE AMINOTRANSFERASE INCREASED [None]
  - PNEUMOMEDIASTINUM [None]
  - BLOOD LACTATE DEHYDROGENASE INCREASED [None]
  - STAPHYLOCOCCUS TEST POSITIVE [None]
  - BRONCHIECTASIS [None]
  - PNEUMOTHORAX [None]
  - PULMONARY FIBROSIS [None]
  - BRONCHITIS CHRONIC [None]
  - RESPIRATORY FAILURE [None]
  - ALANINE AMINOTRANSFERASE INCREASED [None]
  - STUPOR [None]
  - ATELECTASIS [None]
  - STEVENS-JOHNSON SYNDROME [None]
  - HEPATIC FUNCTION ABNORMAL [None]
  - WEANING FAILURE [None]
  - INFECTION [None]
